FAERS Safety Report 16139580 (Version 1)
Quarter: 2019Q2

REPORT INFORMATION
  Report Type: Spontaneous
  Country: DE (occurrence: DE)
  Receive Date: 20190401
  Receipt Date: 20190401
  Transmission Date: 20190711
  Serious: Yes (Other)
  Sender: FDA-Public Use
  Company Number: DE-ACCORD-117476

PATIENT
  Age: 41 Year
  Sex: Female
  Weight: 47 kg

DRUGS (2)
  1. SERTRALINE [Suspect]
     Active Substance: SERTRALINE HYDROCHLORIDE
     Indication: DEPRESSED MOOD
     Route: 048
  2. CEDIA [Concomitant]
     Indication: ENDOMETRIOSIS
     Dosage: DAILY DOSE: 1 DF DOSAGE FORM EVERY DAYS
     Route: 048

REACTIONS (5)
  - Food interaction [Recovered/Resolved]
  - Insomnia [Recovered/Resolved]
  - Restlessness [Recovered/Resolved]
  - Hypertension [Recovered/Resolved]
  - Malaise [Recovered/Resolved]

NARRATIVE: CASE EVENT DATE: 20190102
